FAERS Safety Report 5893923-8 (Version None)
Quarter: 2008Q3

REPORT INFORMATION
  Report Type: 
  Country: None (occurrence: None)
  Receive Date: 20080923
  Receipt Date: 20080912
  Transmission Date: 20090109
  Serious: Yes (Life-Threatening, Hospitalization)
  Sender: FDA-Public Use
  Company Number: DE-ELI_LILLY_AND_COMPANY-DE200808003834

PATIENT
  Sex: Female

DRUGS (3)
  1. BYETTA [Suspect]
     Indication: OBESITY
     Dosage: UNK, UNKNOWN
     Route: 065
     Dates: start: 20071001
  2. BYETTA [Suspect]
     Dosage: 10 UG, 2/D
     Route: 058
     Dates: start: 20071105
  3. METFORMIN HCL [Concomitant]
     Dosage: 500 D/F, UNKNOWN
     Route: 065

REACTIONS (3)
  - APPENDICITIS [None]
  - DIVERTICULITIS [None]
  - OVARIAN GERM CELL TERATOMA BENIGN [None]
